FAERS Safety Report 12291674 (Version 1)
Quarter: 2016Q2

REPORT INFORMATION
  Report Type: Spontaneous
  Country: US (occurrence: US)
  Receive Date: 20160421
  Receipt Date: 20160421
  Transmission Date: 20160815
  Serious: No
  Sender: FDA-Public Use
  Company Number: US-AMGEN-USASP2016028482

PATIENT
  Age: 72 Year
  Sex: Female

DRUGS (1)
  1. REPATHA [Suspect]
     Active Substance: EVOLOCUMAB
     Indication: HYPERCHOLESTEROLAEMIA
     Dosage: 140 MG, Q2WK
     Route: 065

REACTIONS (9)
  - Hot flush [Unknown]
  - Pruritus [Unknown]
  - Myalgia [Unknown]
  - Joint stiffness [Unknown]
  - Fatigue [Unknown]
  - Chills [Unknown]
  - Hyperhidrosis [Unknown]
  - Pain in jaw [Unknown]
  - Diarrhoea [Unknown]
